FAERS Safety Report 22610002 (Version 1)
Quarter: 2023Q2

REPORT INFORMATION
  Report Type: Spontaneous
  Country: JP (occurrence: JP)
  Receive Date: 20230616
  Receipt Date: 20230616
  Transmission Date: 20230722
  Serious: Yes (Hospitalization, Other)
  Sender: FDA-Public Use
  Company Number: JP-PFIZER INC-PV202300056243

PATIENT
  Age: 49 Year
  Sex: Male
  Weight: 60.5 kg

DRUGS (24)
  1. BESPONSA [Suspect]
     Active Substance: INOTUZUMAB OZOGAMICIN
     Indication: Acute lymphocytic leukaemia
     Dosage: 0.8 MG, 1X/DAY, CYCLE 1
     Dates: start: 20220830, end: 20220830
  2. BESPONSA [Suspect]
     Active Substance: INOTUZUMAB OZOGAMICIN
     Dosage: 0.5 MG, 1X/DAY, CYCLE 1
     Dates: start: 20220906, end: 20220906
  3. BESPONSA [Suspect]
     Active Substance: INOTUZUMAB OZOGAMICIN
     Dosage: 0.5 MG, 1X/DAY, CYCLE 1
     Dates: start: 20220913, end: 20220913
  4. BESPONSA [Suspect]
     Active Substance: INOTUZUMAB OZOGAMICIN
     Dosage: 0.8 MG, 1X/DAY, CYCLE 2
     Dates: start: 20220927, end: 20220927
  5. BESPONSA [Suspect]
     Active Substance: INOTUZUMAB OZOGAMICIN
     Dosage: 0.5 MG, 1X/DAY, CYCLE 2
     Dates: start: 20221004, end: 20221004
  6. BESPONSA [Suspect]
     Active Substance: INOTUZUMAB OZOGAMICIN
     Dosage: 0.5 MG, 1X/DAY, CYCLE 2
     Dates: start: 20221011, end: 20221011
  7. BESPONSA [Suspect]
     Active Substance: INOTUZUMAB OZOGAMICIN
     Dosage: 0.8 MG, 1X/DAY, CYCLE 3
     Dates: start: 20221027, end: 20221027
  8. BESPONSA [Suspect]
     Active Substance: INOTUZUMAB OZOGAMICIN
     Dosage: 0.5 MG, 1X/DAY, CYCLE 3
     Dates: start: 20221104, end: 20221104
  9. BESPONSA [Suspect]
     Active Substance: INOTUZUMAB OZOGAMICIN
     Dosage: 0.5 MG, 1X/DAY, CYCLE 3
     Dates: start: 20221110, end: 20221110
  10. BESPONSA [Suspect]
     Active Substance: INOTUZUMAB OZOGAMICIN
     Dosage: 0.8 MG, 1X/DAY, CYCLE 4
     Dates: start: 20221129, end: 20221129
  11. BESPONSA [Suspect]
     Active Substance: INOTUZUMAB OZOGAMICIN
     Dosage: 0.5 MG, 1X/DAY, CYCLE 4
     Dates: start: 20221206, end: 20221206
  12. BESPONSA [Suspect]
     Active Substance: INOTUZUMAB OZOGAMICIN
     Dosage: 0.5 MG, 1X/DAY, CYCLE 4
     Dates: start: 20221213, end: 20221213
  13. BISOPROLOL [Concomitant]
     Active Substance: BISOPROLOL
     Dosage: 2.5 MG, 1X/DAY
     Route: 048
     Dates: start: 20220401
  14. ENALAPRIL [Concomitant]
     Active Substance: ENALAPRIL
     Dosage: 5 MG, 1X/DAY
     Route: 048
     Dates: start: 20220308
  15. MAGNESIUM OXIDE [Concomitant]
     Active Substance: MAGNESIUM OXIDE
     Dosage: 330 MG, 3X/DAY
     Route: 048
     Dates: start: 20211109
  16. FEBUXOSTAT [Concomitant]
     Active Substance: FEBUXOSTAT
     Dosage: 10 MG, 1X/DAY
     Route: 048
     Dates: start: 20221116
  17. NEXIUM [Concomitant]
     Active Substance: ESOMEPRAZOLE MAGNESIUM
     Dosage: 20 MG, 1X/DAY
     Route: 048
     Dates: start: 20220302
  18. ROZEREM [Concomitant]
     Active Substance: RAMELTEON
     Dosage: 8 MG, 1X/DAY
     Route: 048
     Dates: start: 202203
  19. DAYVIGO [Concomitant]
     Active Substance: LEMBOREXANT
     Dosage: 2.5 MG, 1X/DAY
     Route: 048
     Dates: start: 20211129
  20. PREDNISOLONE [Concomitant]
     Active Substance: PREDNISOLONE
     Dosage: 2 MG, 1X/DAY
     Route: 048
     Dates: start: 20221119
  21. CALCIUM POLYSTYRENE SULFONATE [Concomitant]
     Active Substance: CALCIUM POLYSTYRENE SULFONATE
     Dosage: 2 DF, 2X/DAY
     Route: 048
  22. AZOSEMIDE [Concomitant]
     Active Substance: AZOSEMIDE
     Dosage: 15 NG, 1X/DAY
     Route: 048
     Dates: start: 20220311
  23. NOVORAPID [Concomitant]
     Active Substance: INSULIN ASPART
     Dosage: UNK
     Route: 058
  24. TRESIBA [Concomitant]
     Active Substance: INSULIN DEGLUDEC
     Dosage: UNK
     Route: 058

REACTIONS (5)
  - Venoocclusive liver disease [Recovering/Resolving]
  - Ascites [Unknown]
  - Gastrointestinal oedema [Unknown]
  - Decreased appetite [Unknown]
  - Oedema peripheral [Unknown]

NARRATIVE: CASE EVENT DATE: 20221225
